FAERS Safety Report 20448969 (Version 1)
Quarter: 2022Q1

REPORT INFORMATION
  Report Type: Spontaneous
  Country: CN (occurrence: CN)
  Receive Date: 20220209
  Receipt Date: 20220209
  Transmission Date: 20220423
  Serious: Yes (Other)
  Sender: FDA-Public Use
  Company Number: CN-SA-2022SA029481

PATIENT
  Age: 56 Year
  Sex: Male

DRUGS (8)
  1. RIFAMPIN [Suspect]
     Active Substance: RIFAMPIN
     Indication: Pulmonary tuberculosis
     Dosage: UNK
     Dates: start: 201506, end: 2015
  2. RIFAMPIN [Suspect]
     Active Substance: RIFAMPIN
     Dosage: UNK
     Dates: start: 2015
  3. ETHAMBUTOL [Concomitant]
     Active Substance: ETHAMBUTOL HYDROCHLORIDE
     Indication: Pulmonary tuberculosis
     Dosage: UNK
     Dates: start: 201506, end: 2015
  4. ETHAMBUTOL [Concomitant]
     Active Substance: ETHAMBUTOL HYDROCHLORIDE
     Dosage: UNK
     Dates: start: 2015
  5. ISONIAZID [Concomitant]
     Active Substance: ISONIAZID
     Indication: Pulmonary tuberculosis
     Dosage: UNK
     Dates: start: 201506, end: 2015
  6. ISONIAZID [Concomitant]
     Active Substance: ISONIAZID
     Dosage: UNK
     Dates: start: 2015
  7. PYRAZINAMIDE [Concomitant]
     Active Substance: PYRAZINAMIDE
     Indication: Pulmonary tuberculosis
     Dosage: UNK
     Dates: start: 201506, end: 2015
  8. PYRAZINAMIDE [Concomitant]
     Active Substance: PYRAZINAMIDE
     Dosage: UNK
     Dates: start: 2015

REACTIONS (9)
  - Pemphigus [Recovered/Resolved]
  - Oral pain [Recovered/Resolved]
  - Oral mucosa erosion [Recovered/Resolved]
  - Nikolsky^s sign [Recovered/Resolved]
  - Oral disorder [Recovered/Resolved]
  - Gingival hyperpigmentation [Recovered/Resolved]
  - Gingival blister [Recovered/Resolved]
  - Eosinophilia [Recovered/Resolved]
  - Acantholysis [Recovered/Resolved]

NARRATIVE: CASE EVENT DATE: 20150701
